FAERS Safety Report 9274820 (Version 1)
Quarter: 2013Q2

REPORT INFORMATION
  Report Type: Spontaneous
  Country: US (occurrence: US)
  Receive Date: 20130507
  Receipt Date: 20130507
  Transmission Date: 20140414
  Serious: Yes (Hospitalization)
  Sender: FDA-Public Use
  Company Number: US-JNJFOC-20130502609

PATIENT
  Sex: Female

DRUGS (9)
  1. TOPAMAX [Suspect]
     Indication: CONVULSION
     Route: 048
  2. TOPAMAX [Suspect]
     Indication: CONVULSION
     Route: 048
  3. TOPAMAX [Suspect]
     Indication: CONVULSION
     Route: 048
  4. TOPAMAX [Suspect]
     Indication: CONVULSION
     Route: 048
  5. TERAZOL 3 [Suspect]
     Indication: VULVOVAGINAL CANDIDIASIS
     Route: 067
  6. COMPAZINE [Suspect]
     Indication: PRODUCT USED FOR UNKNOWN INDICATION
     Dosage: AND AS NECESSARY
     Route: 048
     Dates: start: 20010405
  7. ANTIVERT [Suspect]
     Indication: VOMITING
     Dosage: AND AS NECESSARY
     Route: 048
     Dates: start: 20010405
  8. FOSPHENYTOIN [Suspect]
     Indication: EPILEPSY
     Dosage: AND AS NECESSARY
     Route: 042
     Dates: start: 200111
  9. MISOPROSTOL [Suspect]
     Indication: OBSTETRICAL PROCEDURE
     Dosage: AND AS NECESSARY
     Route: 065
     Dates: start: 200111

REACTIONS (3)
  - Retained placenta or membranes [Recovered/Resolved]
  - Oligohydramnios [Recovered/Resolved]
  - Exposure during pregnancy [Recovered/Resolved]
